FAERS Safety Report 10185105 (Version 1)
Quarter: 2014Q2

REPORT INFORMATION
  Report Type: Other
  Country: US (occurrence: US)
  Receive Date: 20140521
  Receipt Date: 20140521
  Transmission Date: 20141212
  Serious: Yes (Hospitalization)
  Sender: FDA-Public Use
  Company Number: US-SHIRE-US201402276

PATIENT
  Age: 34 Year
  Sex: Female

DRUGS (1)
  1. FIRAZYR [Suspect]
     Indication: HEREDITARY ANGIOEDEMA
     Dosage: 30 MG, UNKNOWN
     Route: 058
     Dates: start: 20130416

REACTIONS (2)
  - Abdominal discomfort [Recovering/Resolving]
  - Crohn^s disease [Recovering/Resolving]
